FAERS Safety Report 7687496 (Version 2)
Quarter: 2012Q4

REPORT INFORMATION
  Report Type: 
  Country: US (occurrence: US)
  Receive Date: 20101130
  Receipt Date: 20120830
  Transmission Date: 20130627
  Serious: Yes (Hospitalization)
  Sender: FDA-Public Use
  Company Number: US-US-EMD SERONO, INC.-7029193

PATIENT
  Age: 34 None
  Sex: Male

DRUGS (2)
  1. REBIF [Suspect]
     Indication: MULTIPLE SCLEROSIS
     Route: 058
     Dates: start: 20090504
  2. BYSTOLIC [Concomitant]
     Indication: HYPERTENSION

REACTIONS (5)
  - Staphylococcal infection [Recovering/Resolving]
  - Cellulitis [Recovering/Resolving]
  - Injection site cellulitis [Recovering/Resolving]
  - Animal bite [Recovering/Resolving]
  - Skin lesion [Recovering/Resolving]
